FAERS Safety Report 11390288 (Version 1)
Quarter: 2015Q3

REPORT INFORMATION
  Report Type: Spontaneous
  Country: US (occurrence: US)
  Receive Date: 20150818
  Receipt Date: 20150818
  Transmission Date: 20151125
  Serious: No
  Sender: FDA-Public Use
  Company Number: US-ROCHE-1383004

PATIENT
  Sex: Male

DRUGS (1)
  1. PEGASYS [Suspect]
     Active Substance: PEGINTERFERON ALFA-2A
     Indication: CHRONIC HEPATITIS C
     Dosage: THERAPY STOPPED 3 WEEKS AGO DUE TO LOW PLATELET COUNT
     Route: 058
     Dates: start: 20140319

REACTIONS (3)
  - Influenza like illness [Unknown]
  - Fatigue [Unknown]
  - Platelet count decreased [Unknown]
